FAERS Safety Report 18400323 (Version 2)
Quarter: 2021Q4

REPORT INFORMATION
  Report Type: Spontaneous
  Country: US (occurrence: US)
  Receive Date: 20201019
  Receipt Date: 20211103
  Transmission Date: 20220303
  Serious: No
  Sender: FDA-Public Use
  Company Number: US-ALLERGAN-2032000US

PATIENT
  Age: 53 Year
  Sex: Female
  Weight: 120.64 kg

DRUGS (1)
  1. VRAYLAR [Suspect]
     Active Substance: CARIPRAZINE
     Indication: Bipolar disorder
     Dosage: 1.5 MG, QD
     Dates: start: 20200108, end: 20200316

REACTIONS (1)
  - Weight increased [Recovering/Resolving]
